FAERS Safety Report 5045204-2 (Version None)
Quarter: 2006Q3

REPORT INFORMATION
  Report Type: 
  Country: None (occurrence: None)
  Receive Date: 20060707
  Receipt Date: 20060223
  Transmission Date: 20061208
  Serious: Yes (Hospitalization)
  Sender: FDA-Public Use
  Company Number: FR-GLAXOSMITHKLINE-B0413570A

PATIENT
  Age: 28 Day
  Sex: Female
  Weight: 1.6 kg

DRUGS (5)
  1. RETROVIR [Suspect]
     Indication: ANTIVIRAL PROPHYLAXIS
     Dosage: 1.5MGK TWICE PER DAY
     Route: 048
     Dates: start: 20050901, end: 20050907
  2. UNKNOWN ANTIRETROVIRAL TREATMENT [Concomitant]
     Indication: ANTIVIRAL PROPHYLAXIS
  3. CLAFORAN [Concomitant]
     Route: 065
  4. GENTALLINE [Concomitant]
     Route: 065
  5. UN-ALPHA [Concomitant]
     Route: 065

REACTIONS (6)
  - COLITIS ULCERATIVE [None]
  - DRUG EXPOSURE DURING PREGNANCY [None]
  - HAEMATOCHEZIA [None]
  - LEUKOPENIA [None]
  - NECROTISING COLITIS [None]
  - PNEUMATOSIS [None]
